FAERS Safety Report 13614861 (Version 1)
Quarter: 2017Q2

REPORT INFORMATION
  Report Type: Spontaneous
  Country: JP (occurrence: JP)
  Receive Date: 20170606
  Receipt Date: 20170606
  Transmission Date: 20170830
  Serious: Yes (Other)
  Sender: FDA-Public Use
  Company Number: JP-009507513-1705JPN002915J

PATIENT
  Age: 75 Year
  Sex: Male

DRUGS (1)
  1. TEMODAL [Suspect]
     Active Substance: TEMOZOLOMIDE
     Dosage: UNK
     Route: 048
     Dates: start: 20170527

REACTIONS (1)
  - Renal impairment [Unknown]

NARRATIVE: CASE EVENT DATE: 20170530
